FAERS Safety Report 11792845 (Version 7)
Quarter: 2017Q2

REPORT INFORMATION
  Report Type: Report from Study
  Country: BR (occurrence: BR)
  Receive Date: 20151202
  Receipt Date: 20170410
  Transmission Date: 20170829
  Serious: Yes (Death, Hospitalization, Other)
  Sender: FDA-Public Use
  Company Number: PHHY2015BR156837

PATIENT
  Sex: Male
  Weight: 46 kg

DRUGS (5)
  1. TEGRETOL [Suspect]
     Active Substance: CARBAMAZEPINE
     Dosage: 2 DF (TWO TABLETS OF TEGRETOL CR 400 MG 60 CE), QD
     Route: 048
  2. TEGRETOL [Suspect]
     Active Substance: CARBAMAZEPINE
     Indication: FACIAL NEURALGIA
     Dosage: 0.5 DF (HALF TABLET OF TEGRETOL CR 400 MG 60 CE), BID (IN THE MORNING AND AT NIGHT)
     Route: 048
     Dates: start: 201406
  3. TEGRETOL [Suspect]
     Active Substance: CARBAMAZEPINE
     Dosage: 1 DF (ONE TABLET OF TEGRETOL CR 400 MG 60 CE), QHS (AT NIGHT)
     Route: 048
  4. LEVOID [Concomitant]
     Active Substance: LEVOTHYROXINE
     Indication: HYPOTHYROIDISM
     Dosage: 1 DF, QD
     Route: 048
  5. TEGRETOL [Suspect]
     Active Substance: CARBAMAZEPINE
     Indication: SHOCK
     Dosage: 400 MG, UNK
     Route: 048
     Dates: start: 2013

REACTIONS (10)
  - Dysphagia [Fatal]
  - Nodule [Recovered/Resolved]
  - Wrong technique in product usage process [Unknown]
  - Throat cancer [Fatal]
  - Shock [Recovered/Resolved]
  - Irritability [Recovered/Resolved]
  - Dyspnoea [Fatal]
  - Head and neck cancer [Recovering/Resolving]
  - Weight decreased [Fatal]
  - Product use in unapproved indication [Unknown]

NARRATIVE: CASE EVENT DATE: 2013
